FAERS Safety Report 8584933-0 (Version None)
Quarter: 2012Q3

REPORT INFORMATION
  Report Type: 
  Country: None (occurrence: None)
  Receive Date: 20120730
  Receipt Date: 20120716
  Transmission Date: 20120928
  Serious: Yes (Hospitalization)
  Sender: FDA-Public Use
  Company Number: FK201202062

PATIENT
  Age: 57 Year
  Sex: Male
  Weight: 91 kg

DRUGS (5)
  1. RAMIPRIL [Concomitant]
  2. CARBOPLATIN [Suspect]
     Indication: LUNG ADENOCARCINOMA
     Dosage: 645 MG, INTRAVENOUS (NOT OTHERWISE SPECIFIED)
     Route: 042
     Dates: start: 20120326, end: 20120326
  3. PEMETREXED [Suspect]
     Indication: LUNG ADENOCARCINOMA
     Dosage: 1000, INTRAVENOUS (NOT OTHERWISE SPECIFIED)
     Route: 042
     Dates: start: 20120326
  4. MORAB-003 (FARLETUZUMAB) (FARLETUZUMAB) [Suspect]
     Indication: LUNG ADENOCARCINOMA
     Dosage: INTRAVENOUS (NOT OTHERWISE SPECIFIED)
     Route: 042
     Dates: start: 20120326
  5. SERTRALINE HYDROCHLORIDE [Concomitant]

REACTIONS (6)
  - HAEMOGLOBIN DECREASED [None]
  - NEUTROPHIL COUNT DECREASED [None]
  - RED BLOOD CELL COUNT DECREASED [None]
  - WHITE BLOOD CELL COUNT DECREASED [None]
  - HAEMATOCRIT DECREASED [None]
  - EPISTAXIS [None]
